FAERS Safety Report 12332181 (Version 1)
Quarter: 2016Q2

REPORT INFORMATION
  Report Type: Spontaneous
  Country: US (occurrence: US)
  Receive Date: 20160504
  Receipt Date: 20160504
  Transmission Date: 20160815
  Serious: No
  Sender: FDA-Public Use
  Company Number: US-ROCHE-1668608

PATIENT
  Age: 69 Year
  Sex: Male

DRUGS (3)
  1. SERRAPEPTASE [Concomitant]
     Active Substance: SERRAPEPTASE
  2. NATTOKINASE [Concomitant]
     Active Substance: NATTOKINASE
  3. ESBRIET [Suspect]
     Active Substance: PIRFENIDONE
     Indication: IDIOPATHIC PULMONARY FIBROSIS
     Dosage: 3 X 3 TIMES A DAY
     Route: 048

REACTIONS (1)
  - Lethargy [Unknown]
